FAERS Safety Report 5197747-9 (Version None)
Quarter: 2006Q4

REPORT INFORMATION
  Report Type: 
  Country: None (occurrence: None)
  Receive Date: 20061227
  Receipt Date: 20061214
  Transmission Date: 20070319
  Serious: Yes (Life-Threatening, Hospitalization, Other)
  Sender: FDA-Public Use
  Company Number: 2006134099

PATIENT
  Age: 78 Year
  Sex: Female

DRUGS (5)
  1. CELEBREX [Suspect]
     Indication: PLEURITIC PAIN
     Dosage: 100 MG (100 MG, 1 IN 1 D) ORAL
     Route: 048
     Dates: start: 20061019, end: 20061024
  2. ACETYLCYSTEINE [Concomitant]
  3. CHOLEDYL (BRONDECON) [Concomitant]
  4. AMOXIL [Concomitant]
  5. IRBESARTAN [Concomitant]

REACTIONS (5)
  - BLOOD PRESSURE INCREASED [None]
  - CEREBROVASCULAR ACCIDENT [None]
  - EMBOLISM [None]
  - HAEMORRHAGIC STROKE [None]
  - VASOSPASM [None]
